FAERS Safety Report 5972500-4 (Version None)
Quarter: 2008Q4

REPORT INFORMATION
  Report Type: 
  Country: None (occurrence: None)
  Receive Date: 20081201
  Receipt Date: 20081126
  Transmission Date: 20090506
  Serious: Yes (Other)
  Sender: FDA-Public Use
  Company Number: A0758587A

PATIENT
  Age: 71 Year

DRUGS (7)
  1. LUNESTA [Suspect]
     Indication: INSOMNIA
     Dosage: 1MG AT NIGHT
     Route: 048
     Dates: start: 20081107, end: 20081116
  2. WELLBUTRIN [Suspect]
     Indication: DRUG USE FOR UNKNOWN INDICATION
     Route: 048
     Dates: start: 20081001, end: 20081107
  3. ABILIFY [Suspect]
     Indication: DRUG USE FOR UNKNOWN INDICATION
     Dosage: 2MG UNKNOWN
     Route: 048
     Dates: start: 20081029, end: 20081107
  4. AMBIEN [Concomitant]
  5. ATENOLOL [Concomitant]
  6. LISINOPRIL [Concomitant]
  7. FUROSEMIDE [Concomitant]

REACTIONS (10)
  - AGITATION [None]
  - AMNESIA [None]
  - ARTHRALGIA [None]
  - COMPUTERISED TOMOGRAM [None]
  - DIZZINESS [None]
  - HALLUCINATION, VISUAL [None]
  - MYALGIA [None]
  - PARASOMNIA [None]
  - POLLAKIURIA [None]
  - PSYCHOMOTOR HYPERACTIVITY [None]
